FAERS Safety Report 10424605 (Version 1)
Quarter: 2014Q3

REPORT INFORMATION
  Report Type: Spontaneous
  Country: US (occurrence: None)
  Receive Date: 20140725
  Receipt Date: 20140725
  Transmission Date: 20150326
  Serious: No
  Sender: FDA-Public Use
  Company Number: AP356-00893-SPO-US

PATIENT
  Age: 63 Year
  Sex: Female
  Weight: 75 kg

DRUGS (13)
  1. BELVIQ [Suspect]
     Active Substance: LORCASERIN HYDROCHLORIDE
     Indication: WEIGHT DECREASED
     Dosage: 20 MG, 2 IN 1 D, ORAL
     Route: 048
     Dates: start: 20140607, end: 20140614
  2. SYNTHROID [Concomitant]
     Active Substance: LEVOTHYROXINE SODIUM
  3. VICODIN (VICODIN) [Concomitant]
     Active Substance: ACETAMINOPHEN\HYDROCODONE BITARTRATE
  4. TRICOR [Concomitant]
     Active Substance: FENOFIBRATE
  5. PROTONIX (PANTOPRAZOLE) [Concomitant]
  6. GLIPIZIDE (GLIPIZIDE) [Concomitant]
     Active Substance: GLIPIZIDE
  7. NAPROXEN (NAPROXEN) [Concomitant]
     Active Substance: NAPROXEN
  8. FLUTICASONE [Concomitant]
     Active Substance: FLUTICASONE\FLUTICASONE PROPIONATE
  9. KLONOPIN (CLONAZEPAM) [Concomitant]
  10. PRAVASTATIN [Concomitant]
     Active Substance: PRAVASTATIN\PRAVASTATIN SODIUM
  11. JANUVIA (SITAGLIPTINE PHOSPHATE) [Concomitant]
  12. ADVAIR (SERETIDE /01420901/) [Concomitant]
  13. ATENOLOL (ATENOLOL) [Concomitant]
     Active Substance: ATENOLOL

REACTIONS (7)
  - Asthenia [None]
  - Fatigue [None]
  - Back pain [None]
  - Vision blurred [None]
  - Headache [None]
  - Musculoskeletal pain [None]
  - Arthralgia [None]

NARRATIVE: CASE EVENT DATE: 20140608
